FAERS Safety Report 18502819 (Version 1)
Quarter: 2020Q4

REPORT INFORMATION
  Report Type: Report from Study
  Country: CA (occurrence: CA)
  Receive Date: 20201113
  Receipt Date: 20201113
  Transmission Date: 20210114
  Serious: Yes (Other)
  Sender: FDA-Public Use
  Company Number: CA-BAYER-2020-158466

PATIENT
  Sex: Female

DRUGS (1)
  1. JAYDESS [Suspect]
     Active Substance: LEVONORGESTREL
     Dosage: 14 ?G PER DAY, CONTINUOUSLY
     Route: 015
     Dates: start: 201506, end: 20200928

REACTIONS (6)
  - Complication of device removal [None]
  - Device breakage [Recovered/Resolved]
  - Embedded device [Not Recovered/Not Resolved]
  - Procedural pain [None]
  - Device difficult to use [None]
  - Device use issue [None]

NARRATIVE: CASE EVENT DATE: 201806
